FAERS Safety Report 6596146-2 (Version None)
Quarter: 2010Q1

REPORT INFORMATION
  Report Type: 
  Country: None (occurrence: None)
  Receive Date: 20100216
  Receipt Date: 20100202
  Transmission Date: 20100710
  Serious: Yes (Other)
  Sender: FDA-Public Use
  Company Number: SPV1-2010-00196

PATIENT

DRUGS (1)
  1. VYVANSE [Suspect]
     Dosage: ORAL
     Route: 048

REACTIONS (1)
  - HEART RATE DECREASED [None]
